FAERS Safety Report 15582454 (Version 1)
Quarter: 2018Q4

REPORT INFORMATION
  Report Type: Spontaneous
  Country: US (occurrence: US)
  Receive Date: 20181105
  Receipt Date: 20181105
  Transmission Date: 20190205
  Serious: No
  Sender: FDA-Public Use
  Company Number: US-AMGEN-USASP2018152315

PATIENT

DRUGS (1)
  1. AIMOVIG [Suspect]
     Active Substance: ERENUMAB-AOOE
     Indication: PRODUCT USED FOR UNKNOWN INDICATION
     Dosage: UNK
     Route: 065
     Dates: start: 2018

REACTIONS (7)
  - Muscle spasms [Unknown]
  - Headache [Unknown]
  - Drug ineffective [Unknown]
  - Injection site reaction [Unknown]
  - Alopecia [Unknown]
  - Pain [Unknown]
  - Constipation [Unknown]

NARRATIVE: CASE EVENT DATE: 2018
